FAERS Safety Report 24243039 (Version 1)
Quarter: 2024Q3

REPORT INFORMATION
  Report Type: Spontaneous
  Country: US (occurrence: US)
  Receive Date: 20240823
  Receipt Date: 20240823
  Transmission Date: 20241016
  Serious: No
  Sender: BRISTOL MYERS SQUIBB
  Company Number: US-BRISTOL-MYERS SQUIBB COMPANY-2024-132932

PATIENT
  Age: 56 Year
  Sex: Female

DRUGS (2)
  1. ORENCIA [Suspect]
     Active Substance: ABATACEPT
     Indication: Rheumatoid arthritis
     Route: 058
     Dates: start: 201709
  2. ACTEMRA ACTPEN [Concomitant]
     Active Substance: TOCILIZUMAB
     Indication: Rheumatoid arthritis

REACTIONS (1)
  - Pain [Unknown]

NARRATIVE: CASE EVENT DATE: 20240819
